FAERS Safety Report 24730312 (Version 2)
Quarter: 2024Q4

REPORT INFORMATION
  Report Type: Spontaneous
  Country: JP (occurrence: JP)
  Receive Date: 20241213
  Receipt Date: 20241218
  Transmission Date: 20250114
  Serious: Yes (Hospitalization)
  Sender: LEO PHARM
  Company Number: JP-MLMSERVICE-20241203-PI277770-00064-1

PATIENT
  Age: 29 Year
  Sex: Female

DRUGS (1)
  1. BETAMETHASONE DIPROPIONATE\CALCIPOTRIENE [Suspect]
     Active Substance: BETAMETHASONE DIPROPIONATE\CALCIPOTRIENE
     Indication: Erythema
     Dosage: SPRAY

REACTIONS (4)
  - Condition aggravated [Unknown]
  - Off label use [Unknown]
  - Pain [Unknown]
  - Rash [Unknown]
